FAERS Safety Report 11171957 (Version 1)
Quarter: 2015Q2

REPORT INFORMATION
  Report Type: Spontaneous
  Country: US (occurrence: US)
  Receive Date: 20150608
  Receipt Date: 20150608
  Transmission Date: 20150821
  Serious: No
  Sender: FDA-Public Use
  Company Number: US-TARO-2014TAR00035

PATIENT
  Age: 1 Year
  Sex: Male
  Weight: 12.25 kg

DRUGS (2)
  1. CETIRIZINE HCL [Suspect]
     Active Substance: CETIRIZINE HYDROCHLORIDE
     Dosage: 2.5 MG, AS NEEDED
     Route: 048
     Dates: start: 2013, end: 2013
  2. CETIRIZINE HCL [Suspect]
     Active Substance: CETIRIZINE HYDROCHLORIDE
     Dosage: 2.5 MG, 1X/DAY
     Route: 048
     Dates: start: 201404, end: 20140524

REACTIONS (5)
  - Drug ineffective [Recovered/Resolved]
  - Abnormal sleep-related event [Recovered/Resolved]
  - Hypophagia [Recovered/Resolved]
  - Abnormal behaviour [Recovered/Resolved]
  - Crying [Recovered/Resolved]

NARRATIVE: CASE EVENT DATE: 2013
